FAERS Safety Report 4322291-8 (Version None)
Quarter: 2004Q1

REPORT INFORMATION
  Report Type: 
  Country: None (occurrence: None)
  Receive Date: 20040322
  Receipt Date: 20040322
  Transmission Date: 20041129
  Serious: Yes (Hospitalization)
  Sender: FDA-Public Use
  Company Number: None

PATIENT
  Age: 45 Year
  Sex: Male

DRUGS (1)
  1. D-MPH 5 MG TABLETS [Suspect]
     Dosage: 5 MG ONE BID INCREASED TO THREE BID
     Dates: start: 20030902, end: 20031016

REACTIONS (4)
  - MASS [None]
  - MENTAL STATUS CHANGES [None]
  - NEOPLASM [None]
  - NUCLEAR MAGNETIC RESONANCE IMAGING ABNORMAL [None]
